FAERS Safety Report 4456092-7 (Version None)
Quarter: 2004Q3

REPORT INFORMATION
  Report Type: 
  Country: None (occurrence: None)
  Receive Date: 20040922
  Receipt Date: 20040913
  Transmission Date: 20050211
  Serious: Yes (Hospitalization)
  Sender: FDA-Public Use
  Company Number: PHHO2004BR12964

PATIENT
  Age: 42 Year
  Sex: Female
  Weight: 76 kg

DRUGS (1)
  1. ZELMAC / HTF 919A [Suspect]
     Indication: IRRITABLE BOWEL SYNDROME
     Dosage: 6 MG, BID
     Route: 048
     Dates: end: 20040910

REACTIONS (3)
  - ARRHYTHMIA [None]
  - HYPERTENSION [None]
  - NAUSEA [None]
